FAERS Safety Report 9169867 (Version 2)
Quarter: 2013Q2

REPORT INFORMATION
  Report Type: Report from Study
  Country: IT (occurrence: IT)
  Receive Date: 20130319
  Receipt Date: 20130430
  Transmission Date: 20140414
  Serious: Yes (Hospitalization, Other)
  Sender: FDA-Public Use
  Company Number: IT-009507513-1303ITA005098

PATIENT
  Age: 76 Year
  Sex: Male
  Weight: 62 kg

DRUGS (6)
  1. DEXAMETHASONE [Suspect]
     Indication: PLASMA CELL MYELOMA
     Dosage: 40 MG, QD
     Dates: start: 20091016
  2. DEXAMETHASONE [Suspect]
     Dosage: 20 MG, QD
     Dates: start: 20130124
  3. DEXAMETHASONE [Suspect]
     Dosage: 20 MG, QD
     Dates: start: 20130321, end: 20130417
  4. LENALIDOMIDE [Suspect]
     Indication: PLASMA CELL MYELOMA
     Dosage: 10 MG, QD
     Route: 048
     Dates: start: 20091016
  5. LENALIDOMIDE [Suspect]
     Dosage: 5 MG, QD
     Route: 048
     Dates: start: 20130124
  6. LENALIDOMIDE [Suspect]
     Dosage: 5 MG, QD
     Route: 048
     Dates: start: 20130321, end: 20130417

REACTIONS (1)
  - Tuberculosis [Not Recovered/Not Resolved]
